FAERS Safety Report 5400804-2 (Version None)
Quarter: 2007Q3

REPORT INFORMATION
  Report Type: 
  Country: None (occurrence: None)
  Receive Date: 20070730
  Receipt Date: 20070718
  Transmission Date: 20080115
  Serious: Yes (Hospitalization, Other)
  Sender: FDA-Public Use
  Company Number: US-PFIZER INC-2007060668

PATIENT
  Sex: Female
  Weight: 54.4 kg

DRUGS (6)
  1. CHANTIX [Suspect]
     Indication: SMOKING CESSATION THERAPY
     Dates: start: 20060601, end: 20061201
  2. WELLBUTRIN XL [Concomitant]
  3. GLUCOPHAGE [Concomitant]
  4. TRAZODONE HCL [Concomitant]
  5. LAMICTAL [Concomitant]
     Dates: start: 20070201, end: 20070301
  6. TOPAMAX [Concomitant]

REACTIONS (28)
  - AGGRESSION [None]
  - ANGER [None]
  - APHASIA [None]
  - ARTHRALGIA [None]
  - BLADDER DISORDER [None]
  - BLINDNESS [None]
  - BODY TEMPERATURE FLUCTUATION [None]
  - CONFUSIONAL STATE [None]
  - DYSGEUSIA [None]
  - HEADACHE [None]
  - HYPERHIDROSIS [None]
  - HYPOAESTHESIA [None]
  - INCORRECT DOSE ADMINISTERED [None]
  - INSOMNIA [None]
  - IRRITABILITY [None]
  - MEMORY IMPAIRMENT [None]
  - MOOD SWINGS [None]
  - MYALGIA [None]
  - NECK PAIN [None]
  - NICOTINE DEPENDENCE [None]
  - OVERDOSE [None]
  - PAIN IN EXTREMITY [None]
  - PANIC ATTACK [None]
  - RENAL DISORDER [None]
  - SMOKER [None]
  - STRESS [None]
  - URINARY TRACT DISORDER [None]
  - WEIGHT GAIN POOR [None]
